FAERS Safety Report 11438542 (Version 1)
Quarter: 2015Q3

REPORT INFORMATION
  Report Type: Spontaneous
  Country: US (occurrence: None)
  Receive Date: 20150828
  Receipt Date: 20150828
  Transmission Date: 20151125
  Serious: Yes (Life-Threatening)
  Sender: FDA-Public Use
  Company Number: 54973 AE#1625

PATIENT
  Age: 73 Year
  Sex: Female
  Weight: 37.2 kg

DRUGS (1)
  1. HYLAND^S LEG CRAMPS TABLETS [Suspect]
     Active Substance: HOMEOPATHICS
     Indication: MUSCLE SPASMS
     Dosage: SL X 1 DOSE

REACTIONS (7)
  - Vomiting [None]
  - Loss of consciousness [None]
  - Head injury [None]
  - Laceration [None]
  - Mass [None]
  - Fall [None]
  - Swelling face [None]

NARRATIVE: CASE EVENT DATE: 20150806
